FAERS Safety Report 8695895 (Version 2)
Quarter: 2013Q4

REPORT INFORMATION
  Report Type: Spontaneous
  Country: US (occurrence: US)
  Receive Date: 20120801
  Receipt Date: 20131101
  Transmission Date: 20140711
  Serious: No
  Sender: FDA-Public Use
  Company Number: US-009507513-1207USA009901

PATIENT
  Sex: Male

DRUGS (5)
  1. ZOCOR [Suspect]
     Dosage: 80 MG, QD
     Route: 048
  2. LIPITOR [Suspect]
     Dosage: 40 MG, QD
  3. UBIDECARENONE [Suspect]
  4. PLAVIX [Concomitant]
     Dosage: 75 MG, QD
  5. METOPROLOL [Concomitant]
     Dosage: 25 MG, QD

REACTIONS (2)
  - Drug ineffective [Unknown]
  - Arthralgia [Unknown]
